FAERS Safety Report 14236219 (Version 1)
Quarter: 2017Q4

REPORT INFORMATION
  Report Type: Spontaneous
  Country: US (occurrence: US)
  Receive Date: 20171129
  Receipt Date: 20171129
  Transmission Date: 20180321
  Serious: No
  Sender: FDA-Public Use
  Company Number: US-AUROBINDO-AUR-APL-2016-15203

PATIENT
  Age: 67 Year
  Sex: Female
  Weight: 88.43 kg

DRUGS (3)
  1. FLUCONAZOLE TABLETS 100 MG [Suspect]
     Active Substance: FLUCONAZOLE
     Indication: VULVOVAGINAL INFLAMMATION
     Dosage: 2 DF, DAILY
     Route: 048
     Dates: start: 20160920, end: 20160920
  2. FLUCONAZOLE TABLETS 100 MG [Suspect]
     Active Substance: FLUCONAZOLE
     Dosage: 1 DF, DAILY
     Route: 048
     Dates: start: 20160921, end: 20161011
  3. PROCTOSOL [Concomitant]
     Indication: PRODUCT USED FOR UNKNOWN INDICATION
     Dosage: UNK
     Route: 065
     Dates: start: 201609

REACTIONS (1)
  - Alopecia [Not Recovered/Not Resolved]

NARRATIVE: CASE EVENT DATE: 20161209
